FAERS Safety Report 8508257-2 (Version None)
Quarter: 2012Q3

REPORT INFORMATION
  Report Type: 
  Country: None (occurrence: None)
  Receive Date: 20120713
  Receipt Date: 20120704
  Transmission Date: 20120928
  Serious: Yes (Other)
  Sender: FDA-Public Use
  Company Number: JP-VERTEX PHARMACEUTICALS INC.-AE-2012-007777

PATIENT
  Age: 52 Year
  Sex: Female

DRUGS (13)
  1. PROMACTA [Concomitant]
     Route: 048
     Dates: start: 20120620, end: 20120626
  2. GASMOTIN [Concomitant]
     Route: 048
     Dates: start: 20120620, end: 20120626
  3. PEG-INTRON [Concomitant]
     Route: 051
     Dates: start: 20120417, end: 20120417
  4. DINAGEST [Concomitant]
     Route: 048
     Dates: start: 20111112, end: 20120502
  5. RABEPRAZOLE SODIUM [Concomitant]
     Route: 048
     Dates: start: 20120626
  6. TELAVIC (TELAPREVIR) [Suspect]
     Indication: HEPATITIS C
     Route: 048
     Dates: start: 20120403, end: 20120528
  7. PEG-INTRON [Concomitant]
     Route: 058
     Dates: start: 20120626
  8. TELAVIC (TELAPREVIR) [Suspect]
     Route: 048
     Dates: start: 20120529, end: 20120625
  9. RIBAVIRIN [Concomitant]
     Indication: HEPATITIS C
     Route: 048
     Dates: start: 20120403
  10. ALLOPURINOL [Concomitant]
     Route: 048
     Dates: start: 20120417
  11. PEG-INTRON [Concomitant]
     Indication: HEPATITIS C
     Route: 051
     Dates: start: 20120403, end: 20120410
  12. PEG-INTRON [Concomitant]
     Route: 051
     Dates: start: 20120424
  13. ALLOPURINOL [Concomitant]
     Route: 048
     Dates: start: 20120408

REACTIONS (2)
  - NEUTROPHIL COUNT DECREASED [None]
  - WHITE BLOOD CELL COUNT DECREASED [None]
